FAERS Safety Report 9735287 (Version 1)
Quarter: 2013Q4

REPORT INFORMATION
  Report Type: Spontaneous
  Country: GB (occurrence: None)
  Receive Date: 20131204
  Receipt Date: 20131204
  Transmission Date: 20140711
  Serious: Yes (Hospitalization)
  Sender: FDA-Public Use
  Company Number: AUR-APL-2013-09975

PATIENT
  Age: 54 Year
  Sex: Male
  Weight: 111 kg

DRUGS (5)
  1. CIPROFLOXACIN (CIPROFLOXACIN) [Suspect]
     Indication: URINARY TRACT INFECTION
     Dosage: 1000 MG (500 MG,2 IN 1 D)
     Dates: start: 20131108
  2. EXENATIDE ( EXENATIDE) [Concomitant]
  3. GLICLAZIDE ( GLICLAZIDE) [Concomitant]
  4. METFORMIN (METFORMIN) [Concomitant]
  5. SIMVASTATIN ( SIMVASTATIN) [Concomitant]

REACTIONS (1)
  - Pericarditis [None]
